FAERS Safety Report 8888562 (Version 2)
Quarter: 2016Q3

REPORT INFORMATION
  Report Type: Report from Study
  Country: MX (occurrence: MX)
  Receive Date: 20121106
  Receipt Date: 20160914
  Transmission Date: 20161109
  Serious: No
  Sender: FDA-Public Use
  Company Number: PHHY2012MX101383

PATIENT
  Sex: Female

DRUGS (2)
  1. CO-DIOVAN [Suspect]
     Active Substance: HYDROCHLOROTHIAZIDE\VALSARTAN
     Indication: HYPERTENSION
     Dosage: 1 DF (HYDROCHLOROTHIAZIDE 12.5 MG, VALSARTAN 160 MG), QD
     Route: 065
  2. CO-DIOVAN [Suspect]
     Active Substance: HYDROCHLOROTHIAZIDE\VALSARTAN
     Dosage: 1 DF (HYDROCHLOROTHIAZIDE 12.5 MG, VALSARTAN 160 MG) , QHS
     Route: 065

REACTIONS (6)
  - Dizziness [Not Recovered/Not Resolved]
  - Feeling abnormal [Unknown]
  - Chest pain [Not Recovered/Not Resolved]
  - Tachycardia [Unknown]
  - Confusional state [Unknown]
  - Dyspnoea [Not Recovered/Not Resolved]
